FAERS Safety Report 6778986-X (Version None)
Quarter: 2010Q2

REPORT INFORMATION
  Report Type: 
  Country: None (occurrence: None)
  Receive Date: 20100618
  Receipt Date: 20100608
  Transmission Date: 20101027
  Serious: Yes (Life-Threatening, Other)
  Sender: FDA-Public Use
  Company Number: GB-JNJFOC-20071109914

PATIENT
  Age: 50 Year
  Sex: Female
  Weight: 78.7 kg

DRUGS (15)
  1. REMICADE [Suspect]
     Indication: CROHN'S DISEASE
     Route: 042
  2. REMICADE [Suspect]
     Route: 042
  3. ANUSOL [Concomitant]
     Route: 061
  4. CALCICHEW D3 [Concomitant]
     Route: 048
  5. ACETAMINOPHEN AND CODEINE PHOSPHATE [Concomitant]
     Route: 048
  6. FERROUS SULFATE TAB [Concomitant]
     Route: 048
  7. OMEPRAZOLE [Concomitant]
     Route: 048
  8. PENTASA [Concomitant]
     Route: 048
  9. PREDNISOLONE [Concomitant]
     Route: 048
  10. RIFINAH [Concomitant]
     Route: 048
  11. ENSURE [Concomitant]
  12. CALCIUM CARBONATE [Concomitant]
  13. MESALAZINE [Concomitant]
  14. PYRIDOXINE HCL [Concomitant]
  15. RIFAMPICIN [Concomitant]

REACTIONS (8)
  - ANAPHYLACTIC SHOCK [None]
  - BACK PAIN [None]
  - BRONCHOSPASM [None]
  - ERYTHEMA [None]
  - HYPERTENSION [None]
  - INFUSION RELATED REACTION [None]
  - PALPITATIONS [None]
  - TACHYCARDIA [None]
